FAERS Safety Report 9373838 (Version 1)
Quarter: 2013Q2

REPORT INFORMATION
  Report Type: Spontaneous
  Country: DE (occurrence: DE)
  Receive Date: 20130628
  Receipt Date: 20130628
  Transmission Date: 20140414
  Serious: Yes (Life-Threatening, Other)
  Sender: FDA-Public Use
  Company Number: GXKR2013DE002238

PATIENT
  Sex: Female

DRUGS (2)
  1. BELLA HEXAL [Suspect]
     Indication: CONTRACEPTION
     Route: 048
     Dates: start: 2007, end: 2012
  2. JULIETTE [Suspect]
     Indication: CONTRACEPTION
     Route: 048
     Dates: start: 2006, end: 2007

REACTIONS (1)
  - Stress cardiomyopathy [Recovered/Resolved]
